FAERS Safety Report 8814509 (Version 3)
Quarter: 2012Q4

REPORT INFORMATION
  Report Type: 
  Country: IT (occurrence: IT)
  Receive Date: 20120928
  Receipt Date: 20121107
  Transmission Date: 20130627
  Serious: Yes (Other)
  Sender: FDA-Public Use
  Company Number: PHHY2012IT083988

PATIENT
  Age: 48 Year
  Sex: Female

DRUGS (6)
  1. ZOMETA [Suspect]
     Indication: METASTASES TO BONE
     Dosage: UNK UKN, UNK
     Route: 042
     Dates: start: 20070501, end: 20120614
  2. TAMOXIFEN [Concomitant]
     Dosage: UNK UKN, UNK
     Dates: end: 20090920
  3. LETROZOLE [Concomitant]
     Dosage: UNK UKN, UNK
     Dates: end: 20090929
  4. BEVACIZUMAB [Concomitant]
     Dosage: UNK UKN, UNK
     Dates: end: 20090930
  5. EUTIROX [Concomitant]
  6. PARIET [Concomitant]
     Dosage: UNK UKN, UNK

REACTIONS (1)
  - Exposed bone in jaw [Not Recovered/Not Resolved]
